FAERS Safety Report 20945566 (Version 5)
Quarter: 2022Q3

REPORT INFORMATION
  Report Type: Spontaneous
  Country: US (occurrence: US)
  Receive Date: 20220610
  Receipt Date: 20220726
  Transmission Date: 20221027
  Serious: No
  Sender: FDA-Public Use
  Company Number: US-PFIZER INC-202200749497

PATIENT
  Age: 13 Year
  Sex: Female
  Weight: 35.2 kg

DRUGS (2)
  1. GENOTROPIN [Suspect]
     Active Substance: SOMATROPIN
     Indication: Growth disorder
     Dosage: 1.4 MG, DAILY
  2. GENOTROPIN [Suspect]
     Active Substance: SOMATROPIN
     Dosage: 2 MG, DAILY

REACTIONS (6)
  - Injection site haemorrhage [Unknown]
  - Injection site extravasation [Unknown]
  - Device leakage [Unknown]
  - Product container issue [Unknown]
  - Poor quality device used [Unknown]
  - Incorrect dose administered [Unknown]
